FAERS Safety Report 10645950 (Version 1)
Quarter: 2014Q4

REPORT INFORMATION
  Report Type: Report from Study
  Country: GR (occurrence: GR)
  Receive Date: 20141211
  Receipt Date: 20141211
  Transmission Date: 20150529
  Serious: Yes (Other)
  Sender: FDA-Public Use
  Company Number: PHHO2014GR015864

PATIENT
  Age: 54 Year
  Sex: Female
  Weight: 112 kg

DRUGS (10)
  1. REMERON [Concomitant]
     Active Substance: MIRTAZAPINE
     Indication: DEPRESSION
     Dosage: 30 MG, 1/2X1
     Route: 048
  2. XANAX [Concomitant]
     Active Substance: ALPRAZOLAM
     Indication: DEPRESSION
     Dosage: 1 MG, BID
     Route: 048
  3. CREON [Concomitant]
     Active Substance: PANCRELIPASE AMYLASE\PANCRELIPASE LIPASE\PANCRELIPASE PROTEASE
     Indication: PANCREATITIS
     Dosage: 25000 IU, BID
     Route: 048
  4. PROTAPHANE [Concomitant]
     Active Substance: INSULIN HUMAN
     Indication: DIABETES MELLITUS
     Dosage: 28 U, QD (20-0-8)
  5. APIDRA [Concomitant]
     Active Substance: INSULIN GLULISINE
     Indication: DIABETES MELLITUS
     Dosage: ACCORDING TO GLUCOSE VALUE
  6. SANDOSTATIN [Concomitant]
     Active Substance: OCTREOTIDE ACETATE
     Indication: DIARRHOEA
     Dosage: 30 MG, BID
     Route: 042
     Dates: start: 20130925
  7. AFINITOR [Suspect]
     Active Substance: EVEROLIMUS
     Indication: NEUROENDOCRINE TUMOUR
     Dosage: 10 MG, QD
     Route: 048
     Dates: start: 20120925, end: 20130703
  8. AFINITOR [Suspect]
     Active Substance: EVEROLIMUS
     Dosage: 10 MG, QD
     Route: 048
  9. COAPROVEL [Concomitant]
     Active Substance: HYDROCHLOROTHIAZIDE\IRBESARTAN
     Indication: HYPERTENSION
     Dosage: 1 DF, BID (IRBESARTAN 150 MG AND HYDROCHLOROTHIAZIDE 12.5 MG)
     Route: 048
  10. ZANTAC [Concomitant]
     Active Substance: RANITIDINE HYDROCHLORIDE
     Indication: PROPHYLAXIS
     Dosage: 150 MG, BID
     Route: 048

REACTIONS (1)
  - Blood creatine phosphokinase increased [Not Recovered/Not Resolved]

NARRATIVE: CASE EVENT DATE: 20130701
